FAERS Safety Report 6448755-9 (Version None)
Quarter: 2009Q4

REPORT INFORMATION
  Report Type: 
  Country: None (occurrence: None)
  Receive Date: 20091120
  Receipt Date: 20091001
  Transmission Date: 20100525
  Serious: No
  Sender: FDA-Public Use
  Company Number: US-KINGPHARMUSA00001-K200901211

PATIENT
  Sex: Female
  Weight: 63.492 kg

DRUGS (5)
  1. FLECTOR [Suspect]
     Indication: ARTHRALGIA
     Dosage: 1 PATCH, QHS
     Route: 061
     Dates: start: 20090801, end: 20090929
  2. PREVACID [Concomitant]
     Dosage: UNK
  3. CLARINEX [Concomitant]
     Indication: SEASONAL ALLERGY
     Dosage: UNK
  4. NASONEX [Concomitant]
     Indication: SEASONAL ALLERGY
     Dosage: UNK
  5. VITAMINS [Concomitant]
     Dosage: UNK

REACTIONS (2)
  - APPLICATION SITE PRURITUS [None]
  - APPLICATION SITE RASH [None]
